FAERS Safety Report 10462912 (Version 1)
Quarter: 2014Q3

REPORT INFORMATION
  Report Type: Spontaneous
  Country: US (occurrence: US)
  Receive Date: 20140918
  Receipt Date: 20140918
  Transmission Date: 20150326
  Serious: Yes (Hospitalization)
  Sender: FDA-Public Use
  Company Number: US-009507513-1409USA007543

PATIENT
  Age: 75 Year
  Sex: Female
  Weight: 84.81 kg

DRUGS (1)
  1. DECADRON [Suspect]
     Active Substance: DEXAMETHASONE

REACTIONS (1)
  - Cellulitis [Recovered/Resolved]

NARRATIVE: CASE EVENT DATE: 20140530
